FAERS Safety Report 20071660 (Version 1)
Quarter: 2021Q4

REPORT INFORMATION
  Report Type: Spontaneous
  Country: FR (occurrence: FR)
  Receive Date: 20211116
  Receipt Date: 20211116
  Transmission Date: 20220303
  Serious: Yes (Hospitalization, Congenital Anomaly, Other)
  Sender: FDA-Public Use
  Company Number: FR-ABBVIE-21K-056-4160222-00

PATIENT
  Sex: Male
  Weight: 2.23 kg

DRUGS (2)
  1. VALPROATE SODIUM [Suspect]
     Active Substance: VALPROATE SODIUM
     Indication: Maternal exposure timing unspecified
     Route: 064
  2. FOLIC ACID [Concomitant]
     Active Substance: FOLIC ACID
     Indication: Maternal exposure timing unspecified
     Route: 064

REACTIONS (41)
  - Spinal X-ray abnormal [Not Recovered/Not Resolved]
  - Eye disorder [Not Recovered/Not Resolved]
  - Cryptorchism [Not Recovered/Not Resolved]
  - Regurgitation [Not Recovered/Not Resolved]
  - Cleft palate [Not Recovered/Not Resolved]
  - Foetal growth restriction [Unknown]
  - Developmental hip dysplasia [Not Recovered/Not Resolved]
  - Patent ductus arteriosus [Not Recovered/Not Resolved]
  - Hydrocele [Not Recovered/Not Resolved]
  - Brachycephaly [Not Recovered/Not Resolved]
  - Psychomotor retardation [Not Recovered/Not Resolved]
  - Speech disorder [Not Recovered/Not Resolved]
  - Balance disorder [Not Recovered/Not Resolved]
  - Sensory disturbance [Not Recovered/Not Resolved]
  - Brachydactyly [Not Recovered/Not Resolved]
  - Pectus excavatum [Not Recovered/Not Resolved]
  - Abdominal hernia [Not Recovered/Not Resolved]
  - Regurgitation [Not Recovered/Not Resolved]
  - Dysmorphism [Not Recovered/Not Resolved]
  - Dry skin [Not Recovered/Not Resolved]
  - Failure to thrive [Not Recovered/Not Resolved]
  - Developmental delay [Not Recovered/Not Resolved]
  - Epilepsy [Not Recovered/Not Resolved]
  - Hypermobility syndrome [Not Recovered/Not Resolved]
  - Low birth weight baby [Unknown]
  - Anophthalmos [Unknown]
  - Apnoea [Unknown]
  - Pallor [Unknown]
  - Microcephaly [Not Recovered/Not Resolved]
  - Pectus excavatum [Not Recovered/Not Resolved]
  - Talipes [Not Recovered/Not Resolved]
  - Stereotypy [Not Recovered/Not Resolved]
  - Fatigue [Not Recovered/Not Resolved]
  - Sleep disorder [Not Recovered/Not Resolved]
  - Communication disorder [Unknown]
  - Hypotonia [Unknown]
  - Cardiac disorder [Unknown]
  - Premature separation of placenta [Unknown]
  - Cryptorchism [Unknown]
  - Eating disorder [Not Recovered/Not Resolved]
  - Foetal exposure during pregnancy [Unknown]

NARRATIVE: CASE EVENT DATE: 20070322
